FAERS Safety Report 24325055 (Version 2)
Quarter: 2024Q3

REPORT INFORMATION
  Report Type: Spontaneous
  Country: AU (occurrence: AU)
  Receive Date: 20240916
  Receipt Date: 20240920
  Transmission Date: 20241016
  Serious: Yes (Hospitalization)
  Sender: ABBVIE
  Company Number: AU-ABBVIE-5918974

PATIENT
  Age: 83 Year
  Sex: Female

DRUGS (5)
  1. CARBIDOPA\LEVODOPA [Suspect]
     Active Substance: CARBIDOPA\LEVODOPA
     Indication: Parkinson^s disease
     Route: 050
     Dates: start: 202009
  2. CARBIDOPA\LEVODOPA [Suspect]
     Active Substance: CARBIDOPA\LEVODOPA
  3. FLUDROCORTISONE [Concomitant]
     Active Substance: FLUDROCORTISONE
     Indication: Product used for unknown indication
     Dates: start: 202309
  4. AMANTADINE [Concomitant]
     Active Substance: AMANTADINE
     Indication: Dyskinesia
     Dosage: MORNING
     Dates: start: 2014
  5. RASAGILINE [Concomitant]
     Active Substance: RASAGILINE\RASAGILINE MESYLATE
     Indication: Product used for unknown indication
     Dates: start: 2013, end: 202401

REACTIONS (16)
  - Tachycardia [Unknown]
  - Cognitive disorder [Unknown]
  - Impulsive behaviour [Unknown]
  - Orthostatic hypotension [Not Recovered/Not Resolved]
  - Constipation [Unknown]
  - Stoma site infection [Unknown]
  - Dyskinesia [Recovered/Resolved]
  - Device occlusion [Unknown]
  - On and off phenomenon [Not Recovered/Not Resolved]
  - Haemoglobin abnormal [Unknown]
  - Malaise [Unknown]
  - Mobility decreased [Unknown]
  - Memory impairment [Unknown]
  - Diarrhoea [Unknown]
  - On and off phenomenon [Recovered/Resolved]
  - Dyskinesia [Unknown]

NARRATIVE: CASE EVENT DATE: 20200901
